FAERS Safety Report 18132961 (Version 4)
Quarter: 2020Q3

REPORT INFORMATION
  Report Type: Spontaneous
  Country: US (occurrence: US)
  Receive Date: 20200811
  Receipt Date: 20200923
  Transmission Date: 20201103
  Serious: No
  Sender: FDA-Public Use
  Company Number: US-JNJFOC-20200805028

PATIENT
  Age: 53 Year
  Sex: Female
  Weight: 92.62 kg

DRUGS (2)
  1. STELARA [Suspect]
     Active Substance: USTEKINUMAB
     Indication: PSORIASIS
     Dosage: FOLLOWED BY 12 WEEKS
     Route: 058
     Dates: start: 20200807
  2. STELARA [Suspect]
     Active Substance: USTEKINUMAB

REACTIONS (2)
  - Product quality issue [Unknown]
  - Product dose omission issue [Unknown]
